FAERS Safety Report 4661598-1 (Version None)
Quarter: 2005Q2

REPORT INFORMATION
  Report Type: 
  Country: None (occurrence: None)
  Receive Date: 20050511
  Receipt Date: 20050511
  Transmission Date: 20051028
  Serious: Yes (Hospitalization)
  Sender: FDA-Public Use
  Company Number: None

PATIENT
  Age: 49 Year
  Sex: Male

DRUGS (8)
  1. INFLIXIMIAB [Suspect]
     Indication: RHEUMATOID ARTHRITIS
     Dosage: 300 MG
     Dates: start: 20050307
  2. LEFLUNOOMIDE [Concomitant]
  3. ASPIRIN [Concomitant]
  4. LISINOPRIL [Concomitant]
  5. LORAZEPAM [Concomitant]
  6. METOPROLOL [Concomitant]
  7. GEMFIBROZIL [Concomitant]
  8. OMEPRAZOLE [Concomitant]

REACTIONS (2)
  - DYSPNOEA [None]
  - HYPERTENSION [None]
